FAERS Safety Report 5847565-0 (Version None)
Quarter: 2008Q3

REPORT INFORMATION
  Report Type: 
  Country: None (occurrence: None)
  Receive Date: 20080818
  Receipt Date: 20080502
  Transmission Date: 20090109
  Serious: No
  Sender: FDA-Public Use
  Company Number: US-BAYER-200811248NA

PATIENT
  Age: 66 Year
  Sex: Male
  Weight: 99 kg

DRUGS (20)
  1. SORAFENIB [Suspect]
     Indication: GLIOBLASTOMA MULTIFORME
     Dosage: TOTAL DAILY DOSE: 800 MG  UNIT DOSE: 200 MG
     Route: 048
     Dates: start: 20071003, end: 20071005
  2. TEMOZOLOMIDE [Suspect]
     Indication: GLIOBLASTOMA
     Dosage: TOTAL DAILY DOSE: 50 MG/M2
     Route: 048
     Dates: start: 20071003, end: 20071004
  3. PROTONIX [Concomitant]
     Dosage: TOTAL DAILY DOSE: 80 MG
     Route: 048
  4. DEXAMETHASONE [Concomitant]
     Dosage: TOTAL DAILY DOSE: 4 MG
     Route: 048
  5. COSEPT [Concomitant]
     Dosage: TOTAL DAILY DOSE: 4 GTT
     Route: 047
  6. LORAZEPAM [Concomitant]
     Dosage: TOTAL DAILY DOSE: 1 MG
     Route: 048
  7. AMBIEN [Concomitant]
     Dosage: TOTAL DAILY DOSE: 5 MG
     Route: 048
  8. CYCLOBENZAPRINE HCL [Concomitant]
     Dosage: TOTAL DAILY DOSE: 30 MG
     Route: 048
  9. LOVENOX [Concomitant]
     Indication: PULMONARY EMBOLISM
     Dosage: TOTAL DAILY DOSE: 150 MG
     Route: 058
  10. FLUOXETINE [Concomitant]
     Dosage: TOTAL DAILY DOSE: 40 MG
     Route: 048
  11. KEPPRA [Concomitant]
     Dosage: TOTAL DAILY DOSE: 1000 MG
     Route: 048
  12. STOOL SOFTENER [Concomitant]
  13. IMODIUM [Concomitant]
  14. RAINBOW LIGHT MULTIVITAMIN [Concomitant]
  15. SUPER OMEGA FISH OIL [Concomitant]
  16. ANDROGEL [Concomitant]
     Dosage: TOTAL DAILY DOSE: 4 DF
  17. FLUCONAZOLE [Concomitant]
     Indication: ORAL CANDIDIASIS
     Dosage: TOTAL DAILY DOSE: 100 MG
     Route: 048
  18. MAALOX [Concomitant]
  19. POTASSIUM MAGNESIUM ASPARTATE [Concomitant]
  20. BEANO [Concomitant]
     Dosage: TOTAL DAILY DOSE: 2 DF
     Route: 048

REACTIONS (1)
  - PANCREATITIS ACUTE [None]
